FAERS Safety Report 5086563-4 (Version None)
Quarter: 2006Q3

REPORT INFORMATION
  Report Type: 
  Country: None (occurrence: None)
  Receive Date: 20060823
  Receipt Date: 20060710
  Transmission Date: 20061208
  Serious: Yes (Other)
  Sender: FDA-Public Use
  Company Number: US-GLAXOSMITHKLINE-A0611656A

PATIENT
  Age: 40 Year
  Sex: Female
  Weight: 71.8 kg

DRUGS (5)
  1. ADVAIR DISKUS 100/50 [Suspect]
     Dosage: 1PUFF TWICE PER DAY
     Route: 055
     Dates: start: 20060424
  2. NASACORT [Concomitant]
     Dates: start: 20060424
  3. BENADRYL [Concomitant]
     Dates: start: 20060424
  4. UNSPECIFIED MEDICATION [Concomitant]
  5. ALLERGY SHOT [Concomitant]
     Dates: start: 20060501, end: 20060501

REACTIONS (6)
  - ASTHMA [None]
  - ILL-DEFINED DISORDER [None]
  - PHARMACEUTICAL PRODUCT COMPLAINT [None]
  - PULMONARY OEDEMA [None]
  - SINUS CONGESTION [None]
  - THROAT IRRITATION [None]
